FAERS Safety Report 9410097 (Version 2)
Quarter: 2013Q3

REPORT INFORMATION
  Report Type: Report from Study
  Country: US (occurrence: US)
  Receive Date: 20130719
  Receipt Date: 20130823
  Transmission Date: 20140515
  Serious: Yes (Other)
  Sender: FDA-Public Use
  Company Number: US-ABBOTT-13P-163-1073857-00

PATIENT
  Age: 55 Year
  Sex: Female

DRUGS (1)
  1. HUMIRA [Suspect]
     Indication: PSORIASIS
     Dates: start: 201302, end: 20130422

REACTIONS (16)
  - Hypoacusis [Not Recovered/Not Resolved]
  - Onychomadesis [Not Recovered/Not Resolved]
  - Nail hypertrophy [Not Recovered/Not Resolved]
  - Ear swelling [Not Recovered/Not Resolved]
  - Furuncle [Not Recovered/Not Resolved]
  - Asthenia [Not Recovered/Not Resolved]
  - Dizziness [Not Recovered/Not Resolved]
  - Hypotension [Not Recovered/Not Resolved]
  - Sinusitis [Not Recovered/Not Resolved]
  - Hypertension [Not Recovered/Not Resolved]
  - Dermal cyst [Not Recovered/Not Resolved]
  - Infection [Not Recovered/Not Resolved]
  - Staphylococcal infection [Not Recovered/Not Resolved]
  - Skin lesion [Not Recovered/Not Resolved]
  - Flatulence [Unknown]
  - Dyspepsia [Unknown]
